FAERS Safety Report 7108521-8 (Version None)
Quarter: 2010Q4

REPORT INFORMATION
  Report Type: 
  Country: None (occurrence: None)
  Receive Date: 20101117
  Receipt Date: 20101001
  Transmission Date: 20110411
  Serious: No
  Sender: FDA-Public Use
  Company Number: A0875557A

PATIENT
  Age: 59 Year
  Sex: Male

DRUGS (3)
  1. VOTRIENT [Suspect]
     Dosage: 800MG PER DAY
     Route: 048
     Dates: start: 20100806
  2. LOVAZA [Concomitant]
  3. BLOOD PRESSURE MEDICATION [Concomitant]

REACTIONS (2)
  - BACK PAIN [None]
  - BLOOD PRESSURE INCREASED [None]
